FAERS Safety Report 17877952 (Version 2)
Quarter: 2020Q3

REPORT INFORMATION
  Report Type: Report from Study
  Country: US (occurrence: US)
  Receive Date: 20200609
  Receipt Date: 20200708
  Transmission Date: 20201103
  Serious: Yes (Death, Other)
  Sender: FDA-Public Use
  Company Number: US-GILEAD-2020-0470593

PATIENT
  Age: 74 Year
  Sex: Male
  Weight: 95.9 kg

DRUGS (12)
  1. PLACEBO [Suspect]
     Active Substance: UNSPECIFIED INGREDIENT
     Indication: COVID-19
     Dosage: 100 MG, QD
     Route: 042
     Dates: start: 20200512, end: 20200516
  2. MORPHINE [Concomitant]
     Active Substance: MORPHINE
  3. BLINDED REMDESIVIR [Suspect]
     Active Substance: REMDESIVIR
     Indication: COVID-19
     Dosage: 100 MG, QD
     Route: 042
     Dates: start: 20200512, end: 20200516
  4. BLINDED TOCILIZUMAB [Suspect]
     Active Substance: TOCILIZUMAB
     Indication: COVID-19
     Dosage: 100 MG, QD
     Route: 042
     Dates: start: 20200512, end: 20200516
  5. FUROSEMIDE. [Concomitant]
     Active Substance: FUROSEMIDE
     Indication: OEDEMA
     Dosage: UNK
     Dates: start: 20200515, end: 20200516
  6. DOXYCYCLINE. [Concomitant]
     Active Substance: DOXYCYCLINE
     Dosage: UNK
     Dates: start: 20200512, end: 20200514
  7. HEPARIN [Concomitant]
     Active Substance: HEPARIN SODIUM
     Dosage: UNK
     Dates: start: 20200511, end: 20200517
  8. CEFTRIAXONE. [Concomitant]
     Active Substance: CEFTRIAXONE
     Dosage: UNK
     Dates: start: 20200512, end: 20200513
  9. MIDAZOLAM. [Concomitant]
     Active Substance: MIDAZOLAM
     Dosage: UNK
     Dates: start: 20200515, end: 20200515
  10. ATIVAN [Concomitant]
     Active Substance: LORAZEPAM
  11. KETAMINE [Concomitant]
     Active Substance: KETAMINE
     Dosage: UNK
     Dates: start: 20200515, end: 20200515
  12. CONVALESCENT PLASMA [Concomitant]
     Active Substance: HUMAN PLASMA

REACTIONS (2)
  - Pseudomonal bacteraemia [Fatal]
  - Pneumothorax [Fatal]

NARRATIVE: CASE EVENT DATE: 20200522
